FAERS Safety Report 17253068 (Version 1)
Quarter: 2020Q1

REPORT INFORMATION
  Report Type: Report from Study
  Country: GB (occurrence: GB)
  Receive Date: 20200109
  Receipt Date: 20200109
  Transmission Date: 20200409
  Serious: Yes (Other)
  Sender: FDA-Public Use
  Company Number: GB-ROCHE-2513006

PATIENT

DRUGS (7)
  1. BORTEZOMIB. [Suspect]
     Active Substance: BORTEZOMIB
     Indication: DIFFUSE LARGE B-CELL LYMPHOMA
     Dosage: ON DAYS 1 AND 8
     Route: 042
  2. BORTEZOMIB. [Suspect]
     Active Substance: BORTEZOMIB
     Dosage: ON DAYS 1-8
     Route: 058
     Dates: start: 20140228
  3. VINCRISTINE [Suspect]
     Active Substance: VINCRISTINE
     Indication: DIFFUSE LARGE B-CELL LYMPHOMA
     Dosage: MAXIMUM TOTAL DOSE 2 M
     Route: 042
  4. PREDNISOLONE. [Suspect]
     Active Substance: PREDNISOLONE
     Indication: DIFFUSE LARGE B-CELL LYMPHOMA
     Route: 048
  5. CYCLOPHOSPHAMIDE. [Suspect]
     Active Substance: CYCLOPHOSPHAMIDE
     Indication: DIFFUSE LARGE B-CELL LYMPHOMA
     Route: 042
  6. RITUXIMAB. [Suspect]
     Active Substance: RITUXIMAB
     Indication: DIFFUSE LARGE B-CELL LYMPHOMA
     Route: 041
  7. DOXORUBICIN [Suspect]
     Active Substance: DOXORUBICIN
     Indication: DIFFUSE LARGE B-CELL LYMPHOMA
     Route: 042

REACTIONS (38)
  - Dysgeusia [Unknown]
  - Electrolyte imbalance [Unknown]
  - Hyperglycaemia [Unknown]
  - Malnutrition [Unknown]
  - Facial paresis [Unknown]
  - Gastric haemorrhage [Unknown]
  - Headache [Unknown]
  - Hypertriglyceridaemia [Unknown]
  - Hypoalbuminaemia [Unknown]
  - Dizziness [Unknown]
  - Duodenal obstruction [Unknown]
  - Dysphagia [Unknown]
  - Escherichia bacteraemia [Unknown]
  - Glucose tolerance impaired [Unknown]
  - Haemorrhoids [Unknown]
  - Hypertension [Unknown]
  - Hypocalcaemia [Unknown]
  - Liver function test increased [Unknown]
  - Hyponatraemia [Unknown]
  - Ear pain [Unknown]
  - Gastric stenosis [Unknown]
  - Cardiac failure [Unknown]
  - Gastroenteritis [Unknown]
  - General physical health deterioration [Unknown]
  - Hypoacusis [Unknown]
  - Hypophosphataemia [Unknown]
  - Intervertebral disc protrusion [Unknown]
  - Blood bilirubin increased [Unknown]
  - Eye injury [Unknown]
  - Gastrointestinal haemorrhage [Unknown]
  - Hepatic infection [Unknown]
  - Device related infection [Unknown]
  - Hypomagnesaemia [Unknown]
  - Renal impairment [Unknown]
  - Disinhibition [Unknown]
  - Encephalopathy [Unknown]
  - Hyperkalaemia [Unknown]
  - Hypokalaemia [Unknown]
